FAERS Safety Report 5593350-7 (Version None)
Quarter: 2008Q1

REPORT INFORMATION
  Report Type: 
  Country: None (occurrence: None)
  Receive Date: 20080114
  Receipt Date: 20080102
  Transmission Date: 20080703
  Serious: No
  Sender: FDA-Public Use
  Company Number: 230786J07USA

PATIENT
  Age: 46 Year
  Sex: Female
  Weight: 98.8842 kg

DRUGS (4)
  1. REBIF [Suspect]
     Indication: MULTIPLE SCLEROSIS
     Dosage: 44 MCG, 3 IN 1 WEEKS, SUBCUTANEOUS; 22 MCG,
     Route: 058
     Dates: start: 20070907, end: 20071128
  2. REBIF [Suspect]
     Indication: MULTIPLE SCLEROSIS
     Dosage: 44 MCG, 3 IN 1 WEEKS, SUBCUTANEOUS; 22 MCG,
     Route: 058
     Dates: start: 20071128
  3. CYMBALTA [Concomitant]
  4. CRESTOR [Concomitant]

REACTIONS (3)
  - INJECTION SITE DISCOLOURATION [None]
  - OEDEMA PERIPHERAL [None]
  - PAIN IN EXTREMITY [None]
